FAERS Safety Report 8481058-X (Version None)
Quarter: 2012Q3

REPORT INFORMATION
  Report Type: 
  Country: None (occurrence: None)
  Receive Date: 20120702
  Receipt Date: 20120625
  Transmission Date: 20120928
  Serious: Yes (Hospitalization)
  Sender: FDA-Public Use
  Company Number: PHEH2012US003724

PATIENT
  Sex: Male
  Weight: 43.6 kg

DRUGS (8)
  1. ACETAMINOPHEN [Concomitant]
  2. DOXYCYCLINE HYCLATE [Concomitant]
  3. QUININE SULFATE [Concomitant]
  4. CEFTRIAXONE [Concomitant]
  5. LASIX [Concomitant]
  6. ZOFRAN [Concomitant]
  7. QUINIDINE HCL [Concomitant]
     Indication: MALARIA
  8. COARTEM [Suspect]
     Indication: MALARIA
     Dosage: 4 DF, ONCE/SINGLE
     Route: 048
     Dates: start: 20110601

REACTIONS (3)
  - ACUTE RESPIRATORY DISTRESS SYNDROME [None]
  - ACIDOSIS [None]
  - WRONG DRUG ADMINISTERED [None]
